FAERS Safety Report 13009653 (Version 1)
Quarter: 2016Q4

REPORT INFORMATION
  Report Type: Spontaneous
  Country: ES (occurrence: ES)
  Receive Date: 20161208
  Receipt Date: 20161208
  Transmission Date: 20170207
  Serious: Yes (Hospitalization, Other)
  Sender: FDA-Public Use
  Company Number: ES-TAKEDA-2016TUS021817

PATIENT
  Age: 35 Year
  Sex: Female
  Weight: 51 kg

DRUGS (2)
  1. TACROLIMUS. [Concomitant]
     Active Substance: TACROLIMUS
     Indication: COLITIS ULCERATIVE
     Dosage: 3 MG, UNK
     Dates: start: 201507, end: 20160219
  2. ENTYVIO [Suspect]
     Active Substance: VEDOLIZUMAB
     Indication: COLITIS ULCERATIVE
     Dosage: 300 MG, UNK
     Route: 042
     Dates: start: 20160219

REACTIONS (1)
  - Appendicitis [Recovered/Resolved]

NARRATIVE: CASE EVENT DATE: 20160929
